FAERS Safety Report 12273905 (Version 1)
Quarter: 2016Q2

REPORT INFORMATION
  Report Type: Spontaneous
  Country: US (occurrence: US)
  Receive Date: 20160415
  Receipt Date: 20160415
  Transmission Date: 20160815
  Serious: Yes (Other)
  Sender: FDA-Public Use
  Company Number: US-STANDARD HOMEOPATHIC COMPANY-1050623

PATIENT
  Age: 15 Month
  Sex: Male

DRUGS (2)
  1. BABY TEETHING GEL (HYLAND HOMEOPATHIC) [Suspect]
     Active Substance: ATROPA BELLADONNA\CALCIUM PHOSPHATE\CHAMOMILE\COFFEA ARABICA FRUIT
     Indication: TEETHING
     Route: 048
  2. TEETHING GEL [Suspect]
     Active Substance: BENZOCAINE

REACTIONS (3)
  - Seizure [Unknown]
  - Drug withdrawal syndrome [None]
  - Petit mal epilepsy [Unknown]
